FAERS Safety Report 8182033-5 (Version None)
Quarter: 2012Q1

REPORT INFORMATION
  Report Type: 
  Country: None (occurrence: None)
  Receive Date: 20120302
  Receipt Date: 20120228
  Transmission Date: 20120608
  Serious: Yes (Hospitalization)
  Sender: FDA-Public Use
  Company Number: CA-ABBOTT-12P-028-0906512-00

PATIENT
  Sex: Male

DRUGS (1)
  1. HUMIRA [Suspect]
     Indication: CROHN'S DISEASE
     Route: 058
     Dates: start: 20111007

REACTIONS (3)
  - HAEMATEMESIS [None]
  - UPPER GASTROINTESTINAL HAEMORRHAGE [None]
  - VARICES OESOPHAGEAL [None]
